FAERS Safety Report 5407973-9 (Version None)
Quarter: 2007Q3

REPORT INFORMATION
  Report Type: 
  Country: None (occurrence: None)
  Receive Date: 20070803
  Receipt Date: 20070724
  Transmission Date: 20080115
  Serious: No
  Sender: FDA-Public Use
  Company Number: 163-21880-07071388

PATIENT
  Age: 68 Year
  Sex: Female

DRUGS (2)
  1. REVLIMID [Suspect]
     Indication: MYELODYSPLASTIC SYNDROME
     Dosage: 10 MG, DAILY, ORAL
     Route: 048
     Dates: start: 20070404, end: 20070601
  2. BLOOD TRANSFUSION (BLOOD WHOLE) [Concomitant]

REACTIONS (3)
  - HAEMORRHAGE [None]
  - NO THERAPEUTIC RESPONSE [None]
  - VOMITING [None]
